FAERS Safety Report 9183102 (Version 1)
Quarter: 2013Q1

REPORT INFORMATION
  Report Type: Spontaneous
  Country: US (occurrence: US)
  Receive Date: 20130322
  Receipt Date: 20130322
  Transmission Date: 20140127
  Serious: No
  Sender: FDA-Public Use
  Company Number: US-BRISTOL-MYERS SQUIBB COMPANY-16381360

PATIENT
  Age: 69 Year
  Sex: Male
  Weight: 91 kg

DRUGS (7)
  1. ERBITUX [Suspect]
     Indication: COLON CANCER
     Dosage: INTER ON 26JAN12,RESTARTED ON 15FEB12
     Route: 042
     Dates: start: 20120112
  2. CPT-11 [Suspect]
     Indication: COLON CANCER
     Dosage: STOPPED ON 26-JAN-2012 RESTARTED CHEMOTHERAPY ON 15-FEB-2012.
     Route: 042
     Dates: start: 20120112
  3. 5-FLUOROURACIL [Suspect]
     Indication: COLON CANCER
     Dosage: STOPPED ON 26-JAN-2012 RESTARTED CHEMOTHERAPY ON 15-FEB-2012.
     Route: 042
     Dates: start: 20120112
  4. LEUCOVORIN [Suspect]
     Indication: COLON CANCER
     Dosage: STOPPED ON 26-JAN-2012 RESTARTED CHEMOTHERAPY ON 15-FEB-2012.
     Route: 042
     Dates: start: 20120112
  5. LISINOPRIL [Suspect]
     Dosage: STOPPED ON 26-JAN-2012 RESTARTED CHEMOTHERAPY ON 15-FEB-2012.
     Route: 048
     Dates: start: 20120112
  6. ZOFRAN [Suspect]
     Dosage: STOPPED ON 26-JAN-2012 RESTARTED CHEMOTHERAPY ON 15-FEB-2012.
     Dates: start: 20120112
  7. ATIVAN [Suspect]
     Dosage: STOPPED ON 26-JAN-2012 RESTARTED CHEMOTHERAPY ON 15-FEB-2012.
     Dates: start: 20120112

REACTIONS (24)
  - Stomatitis [Recovered/Resolved]
  - Oropharyngeal pain [Recovered/Resolved]
  - Cough [Recovered/Resolved]
  - Nasal discomfort [Recovered/Resolved]
  - Lacrimation increased [Recovered/Resolved]
  - Dry skin [Recovered/Resolved]
  - Skin fissures [Recovered/Resolved]
  - Skin ulcer [Recovered/Resolved]
  - Rhinorrhoea [Recovered/Resolved]
  - Pain [Recovered/Resolved]
  - Diarrhoea [Recovered/Resolved]
  - Blood potassium decreased [Recovered/Resolved]
  - Dyspnoea [Recovered/Resolved]
  - Platelet count decreased [Recovered/Resolved]
  - Protein total decreased [Recovered/Resolved]
  - Fatigue [Recovered/Resolved]
  - Blood pressure increased [Recovered/Resolved]
  - Swelling [Recovered/Resolved]
  - Mucosal inflammation [Recovered/Resolved]
  - Odynophagia [Recovered/Resolved]
  - Abdominal pain [Recovered/Resolved]
  - Nausea [Recovered/Resolved]
  - Rash follicular [Recovered/Resolved]
  - Hypophagia [Recovered/Resolved]
